FAERS Safety Report 9833009 (Version 3)
Quarter: 2014Q3

REPORT INFORMATION
  Report Type: Spontaneous
  Country: US (occurrence: US)
  Receive Date: 20140121
  Receipt Date: 20140903
  Transmission Date: 20150326
  Serious: Yes (Hospitalization, Other)
  Sender: FDA-Public Use
  Company Number: US-009507513-1401USA008298

PATIENT
  Sex: Female

DRUGS (7)
  1. AMITRIPTYLINE HYDROCHLORIDE. [Concomitant]
     Active Substance: AMITRIPTYLINE HYDROCHLORIDE
     Indication: HEADACHE
     Dosage: 25 MG, HS
  2. LISINOPRIL. [Concomitant]
     Active Substance: LISINOPRIL
     Dosage: UNK
     Dates: start: 20081101
  3. OMEPRAZOLE. [Concomitant]
     Active Substance: OMEPRAZOLE
     Dosage: 20 MG, QD
  4. TOPAMAX [Concomitant]
     Active Substance: TOPIRAMATE
     Dosage: 50 MG, BID
  5. WELLBUTRIN [Concomitant]
     Active Substance: BUPROPION HYDROCHLORIDE
     Dosage: 150 MG, BID
  6. VENLAFAXINE HYDROCHLORIDE. [Concomitant]
     Active Substance: VENLAFAXINE HYDROCHLORIDE
     Dosage: 75 MG, TID
  7. NUVARING [Suspect]
     Active Substance: ETHINYL ESTRADIOL\ETONOGESTREL
     Indication: CONTRACEPTION
     Dosage: UNK
     Route: 067
     Dates: start: 20060516, end: 20081101

REACTIONS (19)
  - Asthma [Unknown]
  - Snoring [Unknown]
  - Deep vein thrombosis [Unknown]
  - Uterine enlargement [Unknown]
  - Polycystic ovaries [Unknown]
  - Hypersensitivity [Unknown]
  - Hepatic steatosis [Unknown]
  - Pulmonary embolism [Unknown]
  - Sinus congestion [Unknown]
  - Pain [Unknown]
  - Arthralgia [Unknown]
  - Blood glucose increased [Unknown]
  - Pulmonary embolism [Unknown]
  - Blood pressure increased [Unknown]
  - Depression [Unknown]
  - Migraine [Unknown]
  - Ligament sprain [Unknown]
  - Hepatomegaly [Unknown]
  - Endometrial hypertrophy [Unknown]

NARRATIVE: CASE EVENT DATE: 20081030
